FAERS Safety Report 8459563-1 (Version None)
Quarter: 2012Q2

REPORT INFORMATION
  Report Type: 
  Country: None (occurrence: None)
  Receive Date: 20120622
  Receipt Date: 20120612
  Transmission Date: 20120825
  Serious: Yes (Hospitalization)
  Sender: FDA-Public Use
  Company Number: US-JNJFOC-20120507537

PATIENT
  Sex: Female
  Weight: 154.22 kg

DRUGS (7)
  1. PREDNISONE TAB [Concomitant]
     Dosage: TAPER AS NECESSARY
     Route: 065
  2. REMICADE [Suspect]
     Dosage: DOSE ALSO REPORTED AS 660 MG
     Route: 042
     Dates: start: 20110802, end: 20110802
  3. OTHER THERAPEUTIC PRODUCT [Concomitant]
     Route: 065
  4. REMICADE [Suspect]
     Indication: PSORIATIC ARTHROPATHY
     Route: 042
     Dates: start: 20101116
  5. METHOTREXATE [Suspect]
     Indication: PSORIATIC ARTHROPATHY
     Route: 048
     Dates: start: 20101001, end: 20120131
  6. BIOTIN [Concomitant]
     Route: 065
  7. VITAMIN D [Concomitant]
     Route: 065

REACTIONS (18)
  - BACK PAIN [None]
  - INTERSTITIAL LUNG DISEASE [None]
  - DYSPNOEA [None]
  - COUGH [None]
  - NASOPHARYNGITIS [None]
  - COMPRESSION FRACTURE [None]
  - WEIGHT INCREASED [None]
  - DRUG HYPERSENSITIVITY [None]
  - HYPERHIDROSIS [None]
  - CHEST PAIN [None]
  - PERICARDIAL EFFUSION [None]
  - SLEEP APNOEA SYNDROME [None]
  - PNEUMONIA [None]
  - COSTOCHONDRITIS [None]
  - PULMONARY FIBROSIS [None]
  - LUNG NEOPLASM [None]
  - PNEUMONITIS [None]
  - LYMPHADENOPATHY MEDIASTINAL [None]
